FAERS Safety Report 14919829 (Version 1)
Quarter: 2018Q2

REPORT INFORMATION
  Report Type: Spontaneous
  Country: AM (occurrence: AM)
  Receive Date: 20180521
  Receipt Date: 20180521
  Transmission Date: 20180711
  Serious: Yes (Death)
  Sender: FDA-Public Use
  Company Number: AM-JNJFOC-20180519026

PATIENT
  Age: 40 Year
  Sex: Male

DRUGS (14)
  1. BEDAQUILINE [Suspect]
     Active Substance: BEDAQUILINE
     Indication: TUBERCULOSIS
     Dosage: 400/200 (UNITS UNSPECIFIED)
     Route: 048
     Dates: start: 20170801
  2. LINEZOLID. [Concomitant]
     Active Substance: LINEZOLID
     Indication: TUBERCULOSIS
     Dosage: 600 (UNITS UNSPECIFIED)
     Route: 065
     Dates: start: 20171117
  3. AMOXICILLIN CLAVULANIC ACID [Concomitant]
     Active Substance: AMOXICILLIN\CLAVULANIC ACID
     Indication: TUBERCULOSIS
     Dosage: 2000 (UNITS UNSPECIFIED)
     Route: 065
     Dates: start: 20170829
  4. AMOXICILLIN CLAVULANIC ACID [Concomitant]
     Active Substance: AMOXICILLIN\CLAVULANIC ACID
     Indication: TUBERCULOSIS
     Route: 065
     Dates: start: 20171117
  5. DELAMANID [Concomitant]
     Active Substance: DELAMANID
     Indication: TUBERCULOSIS
     Dosage: 200 UNITS UNSPECIFIED
     Route: 065
     Dates: start: 20170828
  6. DELAMANID [Concomitant]
     Active Substance: DELAMANID
     Indication: TUBERCULOSIS
     Dosage: 200 UNITS UNSPECIFIED
     Route: 065
     Dates: start: 20171117
  7. LINEZOLID. [Concomitant]
     Active Substance: LINEZOLID
     Indication: TUBERCULOSIS
     Dosage: 600 (UNITS UNSPECIFIED)
     Route: 065
     Dates: start: 20170801
  8. CLOFAZIMINE [Concomitant]
     Active Substance: CLOFAZIMINE
     Indication: TUBERCULOSIS
     Dosage: 200/100 (UNITS UNSPECIFIED)
     Route: 065
     Dates: start: 20171117
  9. IMIPENEM [Concomitant]
     Active Substance: IMIPENEM
     Indication: TUBERCULOSIS
     Dosage: 2000 UNITS UNSPECIFIED
     Route: 065
     Dates: start: 20171117
  10. CLOFAZIMINE [Concomitant]
     Active Substance: CLOFAZIMINE
     Indication: TUBERCULOSIS
     Dosage: 200/100 (UNITS UNSPECIFIED)
     Route: 065
     Dates: start: 20170801
  11. BEDAQUILINE [Suspect]
     Active Substance: BEDAQUILINE
     Indication: TUBERCULOSIS
     Dosage: 400/200 (UNITS UNSPECIFIED)
     Route: 048
     Dates: start: 20171117
  12. IMIPENEM [Concomitant]
     Active Substance: IMIPENEM
     Indication: TUBERCULOSIS
     Dosage: 2000 UNITS UNSPECIFIED
     Route: 065
     Dates: start: 20170829
  13. CYCLOSERINE. [Concomitant]
     Active Substance: CYCLOSERINE
     Indication: TUBERCULOSIS
     Dosage: 750 (UNITS UNSPECIFIED)
     Route: 065
     Dates: start: 20170801
  14. CYCLOSERINE. [Concomitant]
     Active Substance: CYCLOSERINE
     Indication: TUBERCULOSIS
     Dosage: 750 (UNITS UNSPECIFIED)
     Route: 065
     Dates: start: 20171117

REACTIONS (1)
  - Post procedural pneumonia [Fatal]

NARRATIVE: CASE EVENT DATE: 20180416
